FAERS Safety Report 7807965-6 (Version None)
Quarter: 2011Q4

REPORT INFORMATION
  Report Type: 
  Country: None (occurrence: None)
  Receive Date: 20111011
  Receipt Date: 20111011
  Transmission Date: 20120403
  Serious: Yes (Life-Threatening, Hospitalization, Disabling)
  Sender: FDA-Public Use
  Company Number: None

PATIENT
  Age: 77 Year
  Sex: Male
  Weight: 77.11 kg

DRUGS (1)
  1. AMLODIPINE BESYLATE AND BENAZEPRIL HCL [Suspect]
     Indication: HYPERTENSION
     Dosage: 1 CAPSULE
     Route: 048
     Dates: start: 20110614, end: 20110630

REACTIONS (3)
  - DIZZINESS [None]
  - PRODUCT QUALITY ISSUE [None]
  - SYNCOPE [None]
